FAERS Safety Report 25787765 (Version 1)
Quarter: 2025Q3

REPORT INFORMATION
  Report Type: Spontaneous
  Country: US (occurrence: US)
  Receive Date: 20250910
  Receipt Date: 20250910
  Transmission Date: 20251021
  Serious: Yes (Other)
  Sender: COOPERSURGICAL
  Company Number: US-COOPERSURGICAL, INC.-2025CPS006429

PATIENT
  Age: 38 Year
  Sex: Female
  Weight: 81.633 kg

DRUGS (1)
  1. PARAGARD T 380A [Suspect]
     Active Substance: COPPER
     Indication: Contraception
     Route: 015
     Dates: start: 20140922

REACTIONS (12)
  - Surgery [Recovered/Resolved]
  - Device breakage [Unknown]
  - Foreign body in reproductive tract [Unknown]
  - Complication of device removal [Unknown]
  - Embedded device [Unknown]
  - Uterine perforation [Not Recovered/Not Resolved]
  - Uterine scar [Not Recovered/Not Resolved]
  - Device issue [Unknown]
  - Abdominal pain [Unknown]
  - Heavy menstrual bleeding [Unknown]
  - Device dislocation [Unknown]
  - Discomfort [Unknown]

NARRATIVE: CASE EVENT DATE: 20201105
